FAERS Safety Report 23059229 (Version 1)
Quarter: 2023Q4

REPORT INFORMATION
  Report Type: Spontaneous
  Country: US (occurrence: US)
  Receive Date: 20231012
  Receipt Date: 20231012
  Transmission Date: 20240109
  Serious: No
  Sender: FDA-Public Use
  Company Number: US-PFIZER INC-202300318159

PATIENT
  Age: 19 Year
  Sex: Male

DRUGS (1)
  1. CIBINQO [Suspect]
     Active Substance: ABROCITINIB
     Indication: Dermatitis atopic
     Dosage: 100 MG, DAILY
     Dates: start: 202307

REACTIONS (2)
  - Sinus congestion [Not Recovered/Not Resolved]
  - Sinus polyp [Not Recovered/Not Resolved]

NARRATIVE: CASE EVENT DATE: 20230901
